FAERS Safety Report 10085924 (Version 1)
Quarter: 2014Q2

REPORT INFORMATION
  Report Type: Spontaneous
  Country: US (occurrence: US)
  Receive Date: 20140418
  Receipt Date: 20140418
  Transmission Date: 20141212
  Serious: No
  Sender: FDA-Public Use
  Company Number: US-BAYER-2014-057532

PATIENT
  Age: 21 Year
  Sex: Female
  Weight: 59 kg

DRUGS (3)
  1. ALEVE TABLET [Suspect]
     Indication: PAIN
     Route: 048
  2. ALEVE TABLET [Suspect]
     Indication: PAIN
     Dosage: 10 DF, UNK
     Route: 048
     Dates: start: 20140415, end: 20140415
  3. METHADONE [Concomitant]

REACTIONS (4)
  - Extra dose administered [None]
  - Pyrexia [Not Recovered/Not Resolved]
  - Feeling hot [Not Recovered/Not Resolved]
  - Drug ineffective [None]
